FAERS Safety Report 14577690 (Version 1)
Quarter: 2018Q1

REPORT INFORMATION
  Report Type: Report from Study
  Country: IQ (occurrence: IQ)
  Receive Date: 20180227
  Receipt Date: 20180227
  Transmission Date: 20180509
  Serious: Yes (Death, Other)
  Sender: FDA-Public Use
  Company Number: IQ-PFIZER INC-2018080808

PATIENT
  Age: 38 Year
  Sex: Male

DRUGS (1)
  1. SUNITINIB MALATE. [Suspect]
     Active Substance: SUNITINIB MALATE
     Indication: METASTATIC RENAL CELL CARCINOMA
     Dosage: 50 MG, CYCLIC FOR 4 WEEKS ON AND 2 WEEKS OFF
     Dates: start: 20150322, end: 20160114

REACTIONS (2)
  - Blood pressure increased [Unknown]
  - Death [Fatal]

NARRATIVE: CASE EVENT DATE: 20150109
